FAERS Safety Report 5795474-8 (Version None)
Quarter: 2008Q2

REPORT INFORMATION
  Report Type: 
  Country: None (occurrence: None)
  Receive Date: 20080630
  Receipt Date: 20080619
  Transmission Date: 20081010
  Serious: Yes (Other)
  Sender: FDA-Public Use
  Company Number: US-JNJFOC-20080605004

PATIENT
  Sex: Female

DRUGS (6)
  1. REMICADE [Suspect]
     Indication: CROHN'S DISEASE
     Route: 042
  2. IMURAN [Concomitant]
  3. QUESTRAN [Concomitant]
  4. IMODIUM [Concomitant]
  5. PREVACID [Concomitant]
  6. OSCAL [Concomitant]

REACTIONS (1)
  - KNEE ARTHROPLASTY [None]
